FAERS Safety Report 5727510-9 (Version None)
Quarter: 2008Q2

REPORT INFORMATION
  Report Type: 
  Country: None (occurrence: None)
  Receive Date: 20080430
  Receipt Date: 20080414
  Transmission Date: 20081010
  Serious: Yes (Death, Hospitalization)
  Sender: FDA-Public Use
  Company Number: A-US2008-20235

PATIENT
  Age: 28 Year
  Sex: Male

DRUGS (1)
  1. TRACLEER [Suspect]
     Indication: PULMONARY HYPERTENSION
     Dosage: ORAL
     Route: 048
     Dates: end: 20080101

REACTIONS (7)
  - COAGULOPATHY [None]
  - COMPLICATIONS OF TRANSPLANT SURGERY [None]
  - DISEASE PROGRESSION [None]
  - HAEMORRHAGE [None]
  - HEART AND LUNG TRANSPLANT [None]
  - PULMONARY ARTERIAL HYPERTENSION [None]
  - RENAL FAILURE [None]
